FAERS Safety Report 6651496-6 (Version None)
Quarter: 2010Q1

REPORT INFORMATION
  Report Type: 
  Country: None (occurrence: None)
  Receive Date: 20100325
  Receipt Date: 20100317
  Transmission Date: 20100710
  Serious: Yes (Other)
  Sender: FDA-Public Use
  Company Number: US-JNJFOC-20100305530

PATIENT

DRUGS (1)
  1. IBUPROFEN [Suspect]
     Indication: DRUG USE FOR UNKNOWN INDICATION
     Route: 048

REACTIONS (6)
  - APNOEA [None]
  - DRUG TOXICITY [None]
  - LETHARGY [None]
  - METABOLIC ACIDOSIS [None]
  - OVERDOSE [None]
  - VOMITING [None]
